FAERS Safety Report 10162392 (Version 1)
Quarter: 2014Q2

REPORT INFORMATION
  Report Type: Spontaneous
  Country: US (occurrence: US)
  Receive Date: 20140509
  Receipt Date: 20140509
  Transmission Date: 20141212
  Serious: No
  Sender: FDA-Public Use
  Company Number: US-009507513-1405USA004292

PATIENT
  Sex: Male

DRUGS (2)
  1. PEGINTRON [Suspect]
     Indication: HEPATITIS C
     Dosage: 150 MCG/0.5ML, UNKNOWN FREQUENCY
     Route: 048
     Dates: start: 2004
  2. REBETOL [Suspect]
     Indication: HEPATITIS C
     Dosage: UNK, UNKNOWN, FORMULATION TABLET
     Route: 048
     Dates: start: 2004

REACTIONS (3)
  - Influenza like illness [Unknown]
  - Drug ineffective [Unknown]
  - Incorrect route of drug administration [Unknown]
